FAERS Safety Report 10248572 (Version 1)
Quarter: 2014Q2

REPORT INFORMATION
  Report Type: Spontaneous
  Country: US (occurrence: None)
  Receive Date: 20140617
  Receipt Date: 20140617
  Transmission Date: 20141212
  Serious: Yes (Other)
  Sender: FDA-Public Use
  Company Number: None

PATIENT
  Age: 16 Year
  Sex: Female
  Weight: 57.15 kg

DRUGS (1)
  1. TRAZODONE [Suspect]
     Indication: INSOMNIA
     Dosage: PT TAKING 1/2 TABLET ONLY 75 MG HS PO
     Route: 048
     Dates: start: 20140606

REACTIONS (3)
  - Anxiety [None]
  - Loss of consciousness [None]
  - Injury [None]
